FAERS Safety Report 7042372-8 (Version None)
Quarter: 2010Q4

REPORT INFORMATION
  Report Type: 
  Country: None (occurrence: None)
  Receive Date: 20101013
  Receipt Date: 20100115
  Transmission Date: 20110411
  Serious: No
  Sender: FDA-Public Use
  Company Number: US-ASTRAZENECA-2010SE01986

PATIENT
  Age: 52 Year
  Sex: Female

DRUGS (5)
  1. SYMBICORT [Suspect]
     Indication: ASTHMA
     Dosage: 160 UG AS TWO PUFFS TWICE A DAY
     Route: 055
     Dates: start: 20090101
  2. SYMBICORT [Suspect]
     Dosage: 160 UG ONE PUFF ONCE A DAY
     Route: 055
     Dates: start: 20090101
  3. SINGULAIR [Concomitant]
  4. CLARITIN [Concomitant]
  5. TOPROL-XL [Concomitant]

REACTIONS (3)
  - COUGH [None]
  - DRUG DOSE OMISSION [None]
  - SINUSITIS [None]
